FAERS Safety Report 8241199-9 (Version None)
Quarter: 2012Q1

REPORT INFORMATION
  Report Type: 
  Country: None (occurrence: None)
  Receive Date: 20120328
  Receipt Date: 20120321
  Transmission Date: 20120608
  Serious: No
  Sender: FDA-Public Use
  Company Number: US-TEVA-330025USA

PATIENT
  Sex: Female

DRUGS (13)
  1. OBETROL [Concomitant]
     Dosage: 20 MILLIGRAM;
     Route: 048
  2. CLONAZEPAM [Concomitant]
     Indication: MUSCLE RELAXANT THERAPY
  3. TRAMADOL HCL [Concomitant]
  4. COPAXONE [Suspect]
     Indication: MULTIPLE SCLEROSIS
     Route: 058
     Dates: start: 20060901
  5. MELOXICAM [Suspect]
  6. DYAZIDE [Concomitant]
     Indication: HYPERTENSION
     Route: 048
  7. FISH OIL [Concomitant]
     Indication: VITAMIN SUPPLEMENTATION
     Route: 048
  8. ZOLPIDEM [Concomitant]
     Indication: INSOMNIA
     Route: 048
  9. FERROUS SULFATE TAB [Concomitant]
     Indication: MEDICAL DIET
     Dosage: 325 MILLIGRAM;
     Route: 048
  10. TIZANIDINE HCL [Concomitant]
  11. VENLAFAXINE [Concomitant]
     Indication: DEPRESSION
     Dosage: 150 MILLIGRAM;
     Route: 048
  12. GABAPENTIN [Concomitant]
     Indication: NEURALGIA
  13. COLECALCIFEROL [Concomitant]
     Indication: VITAMIN SUPPLEMENTATION

REACTIONS (1)
  - RENAL IMPAIRMENT [None]
